FAERS Safety Report 17651158 (Version 1)
Quarter: 2020Q2

REPORT INFORMATION
  Report Type: Spontaneous
  Country: GB (occurrence: GB)
  Receive Date: 20200409
  Receipt Date: 20200409
  Transmission Date: 20200713
  Serious: Yes (Hospitalization, Other)
  Sender: FDA-Public Use
  Company Number: GB-AUROBINDO-AUR-APL-2020-017116

PATIENT
  Age: 89 Year
  Sex: Male

DRUGS (13)
  1. TRIMBOW [Concomitant]
     Active Substance: BECLOMETHASONE DIPROPIONATE\FORMOTEROL FUMARATE\GLYCOPYRROLATE
     Indication: PRODUCT USED FOR UNKNOWN INDICATION
     Dosage: 4 DOSAGE FORM, ONCE A DAY (87MICROGRAMS/DOSE / 5MICROGRAMS/DOSE / 9MICROGRAMS/DOSE. PUFFS)
     Route: 055
  2. ACETYLSALICYLIC ACID [Concomitant]
     Active Substance: ASPIRIN
     Indication: PRODUCT USED FOR UNKNOWN INDICATION
     Dosage: 75 MILLIGRAM, ONCE A DAY (MORNING)
     Route: 048
  3. CASSIA ACUTIFOLIA [Concomitant]
     Indication: PRODUCT USED FOR UNKNOWN INDICATION
     Dosage: 15 MILLIGRAM, ONCE A DAY (NIGHT)
     Route: 048
  4. FOLIC ACID. [Concomitant]
     Active Substance: FOLIC ACID
     Indication: PRODUCT USED FOR UNKNOWN INDICATION
     Dosage: 5 MILLIGRAM, ONCE A DAY (MORNING)
     Route: 048
  5. ROPINIROLE. [Concomitant]
     Active Substance: ROPINIROLE
     Indication: PRODUCT USED FOR UNKNOWN INDICATION
     Dosage: 1.5 MILLIGRAM, ONCE A DAY
     Route: 048
  6. DIPROBASE [Concomitant]
     Active Substance: CHLOROCRESOL
     Indication: PRODUCT USED FOR UNKNOWN INDICATION
     Dosage: 2 DOSAGE FORM, ONCE A DAY
     Route: 061
  7. SALBUTAMOL [Concomitant]
     Active Substance: ALBUTEROL
     Indication: PRODUCT USED FOR UNKNOWN INDICATION
     Dosage: 200 MICROGRAM, AS NECESSARY
     Route: 065
  8. FUROSEMIDE TABLETS [Suspect]
     Active Substance: FUROSEMIDE
     Indication: PRODUCT USED FOR UNKNOWN INDICATION
     Dosage: 40 MILLIGRAM, ONCE A DAY (MORNING)
     Route: 048
     Dates: end: 20200127
  9. MOVICOL [Concomitant]
     Active Substance: POLYETHYLENE GLYCOL 3350\POTASSIUM CHLORIDE\SODIUM BICARBONATE\SODIUM CHLORIDE
     Indication: PRODUCT USED FOR UNKNOWN INDICATION
     Dosage: 13.8 GRAM, AS NECESSARY
     Route: 048
  10. LANSOPRAZOLE. [Concomitant]
     Active Substance: LANSOPRAZOLE
     Indication: PRODUCT USED FOR UNKNOWN INDICATION
     Dosage: 30 MILLIGRAM, ONCE A DAY (MORNING)
     Route: 048
  11. PARACETAMOL [Concomitant]
     Active Substance: ACETAMINOPHEN
     Indication: PRODUCT USED FOR UNKNOWN INDICATION
     Dosage: 4 DOSAGE FORM, ONCE A DAY (500MG/1G. AS NECESSARY)
     Route: 048
  12. PREGABALIN. [Concomitant]
     Active Substance: PREGABALIN
     Indication: PRODUCT USED FOR UNKNOWN INDICATION
     Dosage: 50 MILLIGRAM, ONCE A DAY
     Route: 048
  13. COLECALCIFEROL [Concomitant]
     Active Substance: CHOLECALCIFEROL
     Indication: PRODUCT USED FOR UNKNOWN INDICATION
     Dosage: 40000 INTERNATIONAL UNIT, EVERY WEEK (ON FRIDAYS)
     Route: 048

REACTIONS (3)
  - Acute kidney injury [Recovering/Resolving]
  - Pneumonia [Recovering/Resolving]
  - Dehydration [Recovering/Resolving]

NARRATIVE: CASE EVENT DATE: 20200127
